FAERS Safety Report 19183657 (Version 2)
Quarter: 2021Q2

REPORT INFORMATION
  Report Type: Spontaneous
  Country: US (occurrence: US)
  Receive Date: 20210427
  Receipt Date: 20210512
  Transmission Date: 20210717
  Serious: Yes (Hospitalization)
  Sender: FDA-Public Use
  Company Number: US-DECIPHERA PHARMACEUTICALS LLC-2021US000306

PATIENT
  Sex: Female

DRUGS (2)
  1. RIFAXIMIN. [Concomitant]
     Active Substance: RIFAXIMIN
     Indication: PRODUCT USED FOR UNKNOWN INDICATION
     Dosage: 400 MILLIGRAM, BID
     Route: 065
  2. QINLOCK [Suspect]
     Active Substance: RIPRETINIB
     Indication: GASTROINTESTINAL STROMAL TUMOUR
     Dosage: 100 MILLIGRAM, QD
     Route: 048
     Dates: start: 20210123

REACTIONS (4)
  - Dehydration [Unknown]
  - Anaemia [Unknown]
  - Clostridium difficile infection [Unknown]
  - Muscle spasms [Unknown]
